APPROVED DRUG PRODUCT: BETAPACE AF
Active Ingredient: SOTALOL HYDROCHLORIDE
Strength: 120MG
Dosage Form/Route: TABLET;ORAL
Application: N021151 | Product #002 | TE Code: AB
Applicant: LEGACY PHARMA INC
Approved: Feb 22, 2000 | RLD: Yes | RS: No | Type: RX